FAERS Safety Report 15784734 (Version 1)
Quarter: 2019Q1

REPORT INFORMATION
  Report Type: Spontaneous
  Country: US (occurrence: US)
  Receive Date: 20190103
  Receipt Date: 20190103
  Transmission Date: 20190417
  Serious: Yes (Life-Threatening, Other)
  Sender: FDA-Public Use
  Company Number: US-ALKEM LABORATORIES LIMITED-US-ALKEM-2018-03076

PATIENT
  Age: 70 Year
  Sex: Male

DRUGS (12)
  1. VEDOLIZUMAB [Suspect]
     Active Substance: VEDOLIZUMAB
     Indication: PULMONARY TOXICITY
  2. VEDOLIZUMAB [Suspect]
     Active Substance: VEDOLIZUMAB
     Indication: RESPIRATORY FAILURE
     Dosage: UNK
     Route: 065
  3. MYCOPHENOLATE MOFETIL. [Suspect]
     Active Substance: MYCOPHENOLATE MOFETIL
     Indication: RESPIRATORY FAILURE
  4. MYCOPHENOLATE MOFETIL. [Suspect]
     Active Substance: MYCOPHENOLATE MOFETIL
     Indication: INTERSTITIAL LUNG DISEASE
  5. VEDOLIZUMAB [Suspect]
     Active Substance: VEDOLIZUMAB
     Indication: INTERSTITIAL LUNG DISEASE
  6. OXYGEN. [Concomitant]
     Active Substance: OXYGEN
     Indication: PULMONARY TOXICITY
  7. PREDNISONE. [Suspect]
     Active Substance: PREDNISONE
     Indication: PULMONARY TOXICITY
  8. MYCOPHENOLATE MOFETIL. [Suspect]
     Active Substance: MYCOPHENOLATE MOFETIL
     Indication: PULMONARY TOXICITY
     Dosage: UNK
     Route: 065
  9. PREDNISONE. [Suspect]
     Active Substance: PREDNISONE
     Indication: INTERSTITIAL LUNG DISEASE
     Dosage: 60 MG, QD
     Route: 065
  10. OXYGEN. [Concomitant]
     Active Substance: OXYGEN
     Indication: INTERSTITIAL LUNG DISEASE
  11. PREDNISONE. [Suspect]
     Active Substance: PREDNISONE
     Indication: RESPIRATORY FAILURE
     Dosage: 40 MG, QD
     Route: 065
  12. OXYGEN. [Concomitant]
     Active Substance: OXYGEN
     Indication: RESPIRATORY FAILURE
     Dosage: 6?10 L BY NASAL CANNULA
     Route: 045

REACTIONS (1)
  - Drug ineffective [Not Recovered/Not Resolved]
